FAERS Safety Report 17351973 (Version 3)
Quarter: 2020Q3

REPORT INFORMATION
  Report Type: Spontaneous
  Country: CA (occurrence: CA)
  Receive Date: 20200130
  Receipt Date: 20200820
  Transmission Date: 20201102
  Serious: Yes (Other)
  Sender: FDA-Public Use
  Company Number: CA-CIPHER-2020-CA-000076

PATIENT
  Age: 30 Year
  Sex: Female
  Weight: 89 kg

DRUGS (8)
  1. DILAUDID [Concomitant]
     Active Substance: HYDROMORPHONE HYDROCHLORIDE
  2. CURCUMIN [Concomitant]
     Active Substance: CURCUMIN
  3. ADVIL [Concomitant]
     Active Substance: IBUPROFEN
  4. TRAMADOL HYDROCHLORIDE. [Suspect]
     Active Substance: TRAMADOL HYDROCHLORIDE
     Indication: PRODUCT USED FOR UNKNOWN INDICATION
  5. PREDNISONE. [Suspect]
     Active Substance: PREDNISONE
     Indication: PRODUCT USED FOR UNKNOWN INDICATION
  6. CELEBREX [Concomitant]
     Active Substance: CELECOXIB
  7. ACTEMRA [Suspect]
     Active Substance: TOCILIZUMAB
     Indication: STILL^S DISEASE
     Route: 042
  8. CALCIUM [Concomitant]
     Active Substance: CALCIUM

REACTIONS (19)
  - Ear infection [Unknown]
  - Pharyngitis streptococcal [Unknown]
  - Arthritis [Unknown]
  - Weight increased [Unknown]
  - Drug ineffective [Unknown]
  - Fatigue [Unknown]
  - Gastroenteritis viral [Unknown]
  - Rash [Unknown]
  - Scratch [Unknown]
  - Blood pressure diastolic increased [Unknown]
  - Ear pain [Unknown]
  - Joint range of motion decreased [Unknown]
  - Abdominal pain upper [Unknown]
  - Blood pressure increased [Unknown]
  - Cellulitis [Unknown]
  - Juvenile idiopathic arthritis [Unknown]
  - Weight decreased [Unknown]
  - Constipation [Unknown]
  - Dizziness [Unknown]
